FAERS Safety Report 24955749 (Version 1)
Quarter: 2025Q1

REPORT INFORMATION
  Report Type: Spontaneous
  Country: US (occurrence: US)
  Receive Date: 20250211
  Receipt Date: 20250211
  Transmission Date: 20250409
  Serious: Yes (Hospitalization, Other)
  Sender: SANOFI AVENTIS
  Company Number: US-SA-2025SA034428

PATIENT
  Age: 47 Year
  Sex: Male

DRUGS (13)
  1. DUPIXENT [Suspect]
     Active Substance: DUPILUMAB
     Indication: Dermatitis atopic
     Dosage: 300 MG, QOW
     Route: 058
  2. ERGOCALCIFEROL [Concomitant]
     Active Substance: ERGOCALCIFEROL
  3. PANTOPRAZOLE SODIUM [Concomitant]
     Active Substance: PANTOPRAZOLE SODIUM
  4. NIFEDIPINE [Concomitant]
     Active Substance: NIFEDIPINE
  5. MONTELUKAST SODIUM [Concomitant]
     Active Substance: MONTELUKAST SODIUM
  6. HYDROCORTISONE [Concomitant]
     Active Substance: HYDROCORTISONE
  7. LORATADINE [Concomitant]
     Active Substance: LORATADINE
  8. HALOPERIDOL [Concomitant]
     Active Substance: HALOPERIDOL
  9. BIKTARVY [Concomitant]
     Active Substance: BICTEGRAVIR SODIUM\EMTRICITABINE\TENOFOVIR ALAFENAMIDE FUMARATE
  10. LOSARTAN [Concomitant]
     Active Substance: LOSARTAN
  11. CIPROFLOXACIN [Concomitant]
     Active Substance: CIPROFLOXACIN
  12. LOSARTAN [Concomitant]
     Active Substance: LOSARTAN
  13. CIPROFLOXACIN [Concomitant]
     Active Substance: CIPROFLOXACIN

REACTIONS (6)
  - HIV infection [Unknown]
  - Hospitalisation [Unknown]
  - General physical health deterioration [Unknown]
  - Ear infection [Unknown]
  - Bone disorder [Unknown]
  - Rash [Unknown]

NARRATIVE: CASE EVENT DATE: 20240101
